FAERS Safety Report 8396003-5 (Version None)
Quarter: 2012Q2

REPORT INFORMATION
  Report Type: 
  Country: None (occurrence: None)
  Receive Date: 20120530
  Receipt Date: 20120515
  Transmission Date: 20120825
  Serious: Yes (Hospitalization)
  Sender: FDA-Public Use
  Company Number: JP-JNJFOC-20111006873

PATIENT
  Sex: Female
  Weight: 69 kg

DRUGS (13)
  1. PALIPERIDONE [Suspect]
     Route: 030
     Dates: start: 20111013
  2. PALIPERIDONE [Suspect]
     Route: 030
     Dates: start: 20110622, end: 20110622
  3. PALIPERIDONE [Suspect]
     Route: 030
     Dates: start: 20110816, end: 20110816
  4. NORVASC [Concomitant]
     Indication: HYPERTENSION
     Route: 048
     Dates: start: 20110623
  5. PALIPERIDONE [Suspect]
     Route: 030
     Dates: start: 20110425, end: 20110425
  6. PALIPERIDONE [Suspect]
     Route: 030
     Dates: start: 20110525, end: 20110525
  7. PALIPERIDONE [Suspect]
     Route: 030
     Dates: start: 20110914, end: 20110914
  8. PALIPERIDONE [Suspect]
     Indication: SCHIZOPHRENIA
     Route: 030
     Dates: start: 20110301, end: 20110301
  9. PALIPERIDONE [Suspect]
     Route: 030
     Dates: start: 20110329, end: 20110329
  10. NORVASC [Concomitant]
     Route: 048
     Dates: end: 20110622
  11. PURSENNID [Concomitant]
     Indication: CONSTIPATION
     Route: 048
  12. PALIPERIDONE [Suspect]
     Route: 030
     Dates: start: 20110720, end: 20110720
  13. PALIPERIDONE [Suspect]
     Route: 030
     Dates: start: 20110222, end: 20110222

REACTIONS (1)
  - SCHIZOPHRENIA [None]
